FAERS Safety Report 8182184 (Version 3)
Quarter: 2012Q4

REPORT INFORMATION
  Report Type: 
  Country: US (occurrence: US)
  Receive Date: 20111014
  Receipt Date: 20121016
  Transmission Date: 20130627
  Serious: Yes (Hospitalization)
  Sender: FDA-Public Use
  Company Number: US-US-EMD SERONO, INC.-7087981

PATIENT
  Age: 61 None
  Sex: Female

DRUGS (11)
  1. REBIF [Suspect]
     Indication: MULTIPLE SCLEROSIS
     Route: 058
     Dates: start: 20071003
  2. LISINOPRIL [Concomitant]
     Indication: HYPERTENSION
  3. ZOLOFT [Concomitant]
     Indication: DEPRESSION
  4. PLAVIX [Concomitant]
  5. NEURONTIN [Concomitant]
     Indication: MULTIPLE SCLEROSIS
  6. BUSPAR [Concomitant]
     Indication: MULTIPLE SCLEROSIS
  7. SIMVASTATIN [Concomitant]
     Indication: BLOOD CHOLESTEROL
  8. SPIRIVA [Concomitant]
     Indication: CHRONIC OBSTRUCTIVE PULMONARY DISEASE
  9. ALBUTEROL [Concomitant]
     Indication: CHRONIC OBSTRUCTIVE PULMONARY DISEASE
  10. HYDROCODONE [Concomitant]
     Indication: PAIN
  11. XANAX [Concomitant]
     Indication: ANXIETY

REACTIONS (2)
  - Myocardial infarction [Recovered/Resolved]
  - Multiple sclerosis relapse [Recovered/Resolved]
